FAERS Safety Report 11798367 (Version 3)
Quarter: 2015Q4

REPORT INFORMATION
  Report Type: Report from Study
  Country: KR (occurrence: KR)
  Receive Date: 20151203
  Receipt Date: 20151215
  Transmission Date: 20160305
  Serious: Yes (Hospitalization, Other)
  Sender: FDA-Public Use
  Company Number: PHHY2015KR152546

PATIENT
  Age: 73 Year
  Sex: Male

DRUGS (3)
  1. GLIVEC [Suspect]
     Active Substance: IMATINIB MESYLATE
     Indication: CHRONIC MYELOID LEUKAEMIA
     Dosage: UNK
     Route: 048
     Dates: start: 201508, end: 201510
  2. TASIGNA [Suspect]
     Active Substance: NILOTINIB
     Dosage: 400 MG, QD (PER DAY)
     Route: 048
     Dates: start: 20150523, end: 201508
  3. TASIGNA [Suspect]
     Active Substance: NILOTINIB
     Indication: CHRONIC MYELOID LEUKAEMIA
     Dosage: BID
     Route: 048
     Dates: start: 20080523

REACTIONS (9)
  - Angina pectoris [Not Recovered/Not Resolved]
  - Fatigue [Unknown]
  - Chest discomfort [Unknown]
  - Weight increased [Unknown]
  - Chest pain [Unknown]
  - Dysarthria [Recovered/Resolved]
  - Monoplegia [Recovering/Resolving]
  - Neck pain [Unknown]
  - Generalised oedema [Recovered/Resolved]

NARRATIVE: CASE EVENT DATE: 201508
